FAERS Safety Report 5551535-X (Version None)
Quarter: 2007Q4

REPORT INFORMATION
  Report Type: 
  Country: None (occurrence: None)
  Receive Date: 20071129
  Receipt Date: 20070515
  Transmission Date: 20080405
  Serious: Yes (Other)
  Sender: FDA-Public Use
  Company Number: US200703000510

PATIENT
  Age: 21 Year
  Sex: Male
  Weight: 88.4 kg

DRUGS (2)
  1. ZYPREXA [Suspect]
     Indication: SCHIZOPHRENIA
     Dosage: 5 MG, DAILY (1/D), ORAL, 10 MG, DAILY (1/D), ORAL
     Route: 048
     Dates: start: 20030903, end: 20040429
  2. ZYPREXA [Suspect]
     Indication: SCHIZOPHRENIA
     Dosage: 5 MG, DAILY (1/D), ORAL, 10 MG, DAILY (1/D), ORAL
     Route: 048
     Dates: start: 20040430, end: 20040826

REACTIONS (1)
  - WEIGHT INCREASED [None]
